FAERS Safety Report 10020933 (Version 1)
Quarter: 2014Q1

REPORT INFORMATION
  Report Type: Spontaneous
  Country: US (occurrence: US)
  Receive Date: 20140319
  Receipt Date: 20140319
  Transmission Date: 20141002
  Serious: Yes (Hospitalization)
  Sender: FDA-Public Use
  Company Number: US-BRISTOL-MYERS SQUIBB COMPANY-20418091

PATIENT
  Age: 78 Year
  Sex: Male
  Weight: 146.48 kg

DRUGS (1)
  1. ELIQUIS [Suspect]
     Dates: start: 2013

REACTIONS (3)
  - Arthropathy [Unknown]
  - Calculus bladder [Unknown]
  - Prostatomegaly [Unknown]
